FAERS Safety Report 7213549-3 (Version None)
Quarter: 2011Q1

REPORT INFORMATION
  Report Type: 
  Country: None (occurrence: None)
  Receive Date: 20110106
  Receipt Date: 20110104
  Transmission Date: 20110831
  Serious: Yes (Other)
  Sender: FDA-Public Use
  Company Number: US-PFIZER INC-2011001900

PATIENT
  Sex: Male
  Weight: 86.168 kg

DRUGS (3)
  1. ZOLOFT [Suspect]
     Indication: POST-TRAUMATIC STRESS DISORDER
     Dosage: 100 MG DAILY
     Route: 048
     Dates: start: 20080101
  2. HYDROCHLOROTHIAZIDE [Concomitant]
     Indication: BLOOD PRESSURE ABNORMAL
     Dosage: 25 MG, 1X/DAY
     Route: 048
  3. DURAGESIC-50 [Concomitant]
     Indication: PAIN
     Dosage: 2.5 UG, UNK
     Route: 062

REACTIONS (2)
  - DEPRESSION [None]
  - SCIATICA [None]
